FAERS Safety Report 12368258 (Version 1)
Quarter: 2016Q2

REPORT INFORMATION
  Report Type: Report from Study
  Country: US (occurrence: CA)
  Receive Date: 20160513
  Receipt Date: 20160513
  Transmission Date: 20160815
  Serious: Yes (Other)
  Sender: FDA-Public Use
  Company Number: US-009507513-1605CAN005256

PATIENT

DRUGS (3)
  1. PEGETRON [Suspect]
     Active Substance: PEGINTERFERON ALFA-2B\RIBAVIRIN
     Indication: HEPATITIS C
     Dosage: UNK
     Route: 048
  2. TELAPREVIR [Suspect]
     Active Substance: TELAPREVIR
     Indication: HEPATITIS C
     Dosage: UNK
  3. VICTRELIS [Suspect]
     Active Substance: BOCEPREVIR
     Indication: HEPATITIS C
     Dosage: UNK
     Route: 048

REACTIONS (1)
  - Hepatitis C [Unknown]
